FAERS Safety Report 11964787 (Version 1)
Quarter: 2016Q1

REPORT INFORMATION
  Report Type: Spontaneous
  Country: US (occurrence: None)
  Receive Date: 20160125
  Receipt Date: 20160125
  Transmission Date: 20160526
  Serious: Yes (Other)
  Sender: FDA-Public Use
  Company Number: None

PATIENT
  Age: 43 Year
  Sex: Female
  Weight: 83.92 kg

DRUGS (4)
  1. NORETHINDRONE. [Concomitant]
     Active Substance: NORETHINDRONE
  2. IRON GLYCINATE VEG LIFE [Concomitant]
  3. NORETHINDRONE. [Suspect]
     Active Substance: NORETHINDRONE
     Indication: UTERINE LEIOMYOMA
     Dosage: 1 PILL 1X DAILY ONCE DAILY TAKEN BY MOUTH
     Route: 048
     Dates: start: 20160106, end: 20160122
  4. VEGAN IRON CHEWABLE [Concomitant]

REACTIONS (7)
  - Weight increased [None]
  - Visual impairment [None]
  - Pain in jaw [None]
  - Headache [None]
  - Hypoaesthesia [None]
  - Dyspepsia [None]
  - Dyspnoea [None]

NARRATIVE: CASE EVENT DATE: 20160110
